FAERS Safety Report 4372801-X (Version None)
Quarter: 2004Q2

REPORT INFORMATION
  Report Type: 
  Country: None (occurrence: None)
  Receive Date: 20040526
  Receipt Date: 20040513
  Transmission Date: 20050107
  Serious: Yes (Hospitalization)
  Sender: FDA-Public Use
  Company Number: ZANA001308

PATIENT
  Age: 75 Year
  Sex: Male

DRUGS (4)
  1. ZANAFLEX [Suspect]
     Indication: MUSCLE CRAMP
     Dosage: 4 MG DAILY ORAL
     Route: 048
     Dates: start: 20040101, end: 20040401
  2. REQUIP [Concomitant]
  3. SINEMET (LEVODOPA) [Concomitant]
  4. MIRAPEX (PRAMIPEXOLE DIHYDROCHLORIDE0 [Concomitant]

REACTIONS (2)
  - DELUSION [None]
  - HALLUCINATION [None]
